FAERS Safety Report 24247653 (Version 1)
Quarter: 2024Q3

REPORT INFORMATION
  Report Type: Report from Study
  Country: US (occurrence: US)
  Receive Date: 20240826
  Receipt Date: 20240826
  Transmission Date: 20241017
  Serious: Yes (Hospitalization, Other)
  Sender: TAKEDA
  Company Number: US-TAKEDA-2021TUS072719

PATIENT
  Sex: Female
  Weight: 52 kg

DRUGS (3)
  1. PONATINIB [Suspect]
     Active Substance: PONATINIB
     Indication: Chronic myeloid leukaemia
     Dosage: 45 MILLIGRAM, QD
     Route: 065
     Dates: start: 20211117
  2. PONATINIB [Suspect]
     Active Substance: PONATINIB
     Indication: Ascites
     Dosage: 30 MILLIGRAM, QD
     Route: 065
     Dates: start: 20220414
  3. PONATINIB [Suspect]
     Active Substance: PONATINIB
     Dosage: 15 MILLIGRAM, QD
     Route: 048

REACTIONS (4)
  - Hallucination [Unknown]
  - Amnesia [Unknown]
  - Product dose omission issue [Unknown]
  - Off label use [Unknown]
